FAERS Safety Report 13436083 (Version 1)
Quarter: 2017Q2

REPORT INFORMATION
  Report Type: Spontaneous
  Country: US (occurrence: US)
  Receive Date: 20170413
  Receipt Date: 20170413
  Transmission Date: 20170830
  Serious: Yes (Other)
  Sender: FDA-Public Use
  Company Number: US-TEVA-758559USA

PATIENT
  Age: 48 Year
  Sex: Male

DRUGS (2)
  1. COPAXONE [Suspect]
     Active Substance: GLATIRAMER ACETATE
     Indication: MULTIPLE SCLEROSIS
     Route: 058
  2. PROVIGIL [Concomitant]
     Active Substance: MODAFINIL

REACTIONS (4)
  - Laceration [Unknown]
  - Fall [Unknown]
  - Fatigue [Unknown]
  - Hemiparesis [Unknown]

NARRATIVE: CASE EVENT DATE: 201703
